FAERS Safety Report 24264691 (Version 1)
Quarter: 2024Q3

REPORT INFORMATION
  Report Type: Spontaneous
  Country: US (occurrence: None)
  Receive Date: 20240828
  Receipt Date: 20240828
  Transmission Date: 20241016
  Serious: Yes (Hospitalization)
  Sender: Public
  Company Number: None

PATIENT
  Age: 48 Year
  Sex: Male

DRUGS (5)
  1. RYDAPT [Suspect]
     Active Substance: MIDOSTAURIN
     Indication: Acute myeloid leukaemia
     Dosage: FREQ: TAKE 2 CAPSULES BY MOUTH TWO TIMES A DAY QN DAYS 8-21 QF EACH 28-DAY CYCLE. TAKE WITH FQQD. ?D
     Route: 048
  2. AVINZA [Concomitant]
     Active Substance: MORPHINE SULFATE
  3. NEURONTIN [Concomitant]
     Active Substance: GABAPENTIN
  4. PEGINTRON [Concomitant]
     Active Substance: PEGINTERFERON ALFA-2B
  5. RIBAVIRIN [Concomitant]
     Active Substance: RIBAVIRIN

REACTIONS (3)
  - Leukopenia [None]
  - Product use issue [None]
  - Product dose omission in error [None]

NARRATIVE: CASE EVENT DATE: 20240701
